FAERS Safety Report 9820020 (Version 1)
Quarter: 2013Q4

REPORT INFORMATION
  Report Type: Spontaneous
  Country: US (occurrence: None)
  Receive Date: 20131223
  Receipt Date: 20131223
  Transmission Date: 20140711
  Serious: No
  Sender: FDA-Public Use
  Company Number: 218324

PATIENT
  Age: 65 Year
  Sex: Male

DRUGS (5)
  1. PICATO [Suspect]
     Indication: ACTINIC KERATOSIS
     Dates: start: 20120706, end: 20120707
  2. METFORMIN (METFORMIN) [Concomitant]
  3. PRAVASTATIN (PRAVASTATIN) [Concomitant]
  4. ALLEGRA (FEXOFENADINE) [Concomitant]
  5. LANTUS (INSULIN GLARGINE) [Concomitant]

REACTIONS (3)
  - Drug ineffective [None]
  - Drug administration error [None]
  - Drug administered at inappropriate site [None]
